FAERS Safety Report 6291422-5 (Version None)
Quarter: 2009Q3

REPORT INFORMATION
  Report Type: 
  Country: None (occurrence: None)
  Receive Date: 20090730
  Receipt Date: 20090717
  Transmission Date: 20100115
  Serious: Yes (Other)
  Sender: FDA-Public Use
  Company Number: ES-MYLANLABS-2009S1012687

PATIENT
  Sex: Female

DRUGS (1)
  1. RISPERIDONE [Suspect]
     Route: 048

REACTIONS (1)
  - TORSADE DE POINTES [None]
